FAERS Safety Report 4826326-5 (Version None)
Quarter: 2005Q4

REPORT INFORMATION
  Report Type: 
  Country: None (occurrence: None)
  Receive Date: 20051111
  Receipt Date: 20050811
  Transmission Date: 20060501
  Serious: Yes (Death, Hospitalization)
  Sender: FDA-Public Use
  Company Number: FR-ROCHE-413870

PATIENT
  Age: 74 Year
  Sex: Male
  Weight: 82 kg

DRUGS (6)
  1. INTERFERON ALFA-2A [Suspect]
     Indication: METASTATIC RENAL CELL CARCINOMA
     Route: 058
     Dates: start: 20050727, end: 20050804
  2. BLINDED BEVACIZUMAB [Suspect]
     Indication: METASTATIC RENAL CELL CARCINOMA
     Route: 042
     Dates: start: 20050727, end: 20050810
  3. OZIDIA [Concomitant]
  4. TRIVASTAL [Concomitant]
  5. SINEMET [Concomitant]
  6. CELANCE [Concomitant]

REACTIONS (4)
  - ASTHENIA [None]
  - DIARRHOEA [None]
  - HYPERCATABOLISM [None]
  - PHLEBITIS [None]
